FAERS Safety Report 13502745 (Version 2)
Quarter: 2017Q2

REPORT INFORMATION
  Report Type: Other
  Country: US (occurrence: US)
  Receive Date: 20170502
  Receipt Date: 20170526
  Transmission Date: 20170830
  Serious: Yes (Hospitalization)
  Sender: FDA-Public Use
  Company Number: US-ACORDA-ACO_136870_2017

PATIENT
  Age: 75 Year
  Sex: Female

DRUGS (1)
  1. AMPYRA [Suspect]
     Active Substance: DALFAMPRIDINE
     Indication: MULTIPLE SCLEROSIS
     Dosage: 10 MG, Q 12 HRS
     Route: 048
     Dates: start: 20160512

REACTIONS (4)
  - Deep vein thrombosis [Unknown]
  - Anaemia [Unknown]
  - Dyspnoea [Unknown]
  - Balance disorder [Unknown]

NARRATIVE: CASE EVENT DATE: 201705
